FAERS Safety Report 18414391 (Version 1)
Quarter: 2020Q4

REPORT INFORMATION
  Report Type: Spontaneous
  Country: US (occurrence: US)
  Receive Date: 20201021
  Receipt Date: 20201021
  Transmission Date: 20210114
  Serious: No
  Sender: FDA-Public Use
  Company Number: None

PATIENT
  Age: 81 Year
  Sex: Male
  Weight: 86.09 kg

DRUGS (13)
  1. CAPECITABINE. [Suspect]
     Active Substance: CAPECITABINE
     Indication: RECTAL CANCER
     Dosage: ?          OTHER FREQUENCY:BID 14/21 DAYS;?
     Route: 048
     Dates: start: 20200220
  2. TAMSULOSIN [Concomitant]
     Active Substance: TAMSULOSIN
  3. LORAZEPAM. [Concomitant]
     Active Substance: LORAZEPAM
  4. MULTIVITAMIN [Concomitant]
     Active Substance: VITAMINS
  5. SIMVASTATIN. [Concomitant]
     Active Substance: SIMVASTATIN
  6. ASPIRIN. [Concomitant]
     Active Substance: ASPIRIN
  7. PROCHLORPERAZINE. [Concomitant]
     Active Substance: PROCHLORPERAZINE
  8. ONDANSETRON [Concomitant]
     Active Substance: ONDANSETRON
  9. SENNA LAXATIVE [Concomitant]
     Active Substance: SENNOSIDES
  10. COLACE [Concomitant]
     Active Substance: DOCUSATE SODIUM
  11. HYDROCHLOROTHIAZIDE. [Concomitant]
     Active Substance: HYDROCHLOROTHIAZIDE
  12. MIRALAX [Concomitant]
     Active Substance: POLYETHYLENE GLYCOL 3350
  13. SERTRALINE [Concomitant]
     Active Substance: SERTRALINE HYDROCHLORIDE

REACTIONS (3)
  - Rash [None]
  - Erythema [None]
  - Neuropathy peripheral [None]

NARRATIVE: CASE EVENT DATE: 20201021
